FAERS Safety Report 15820921 (Version 4)
Quarter: 2021Q1

REPORT INFORMATION
  Report Type: Spontaneous
  Country: US (occurrence: US)
  Receive Date: 20190114
  Receipt Date: 20210217
  Transmission Date: 20210419
  Serious: No
  Sender: FDA-Public Use
  Company Number: US-009507513-1901USA004482

PATIENT
  Age: 66 Year
  Sex: Female

DRUGS (5)
  1. ASMANEX [Suspect]
     Active Substance: MOMETASONE FUROATE
     Dosage: 2 PUFFS DAILY
     Route: 055
     Dates: start: 20210123
  2. HYDROCHLOROTHIAZIDE. [Concomitant]
     Active Substance: HYDROCHLOROTHIAZIDE
     Dosage: UNK
  3. ASMANEX [Suspect]
     Active Substance: MOMETASONE FUROATE
     Indication: ASTHMA
     Dosage: UNK
     Route: 055
  4. VENTOLIN [Concomitant]
     Active Substance: ALBUTEROL SULFATE
     Dosage: UNK
  5. AMLODIPINE [Concomitant]
     Active Substance: AMLODIPINE BESYLATE
     Dosage: UNK

REACTIONS (8)
  - Dyspnoea [Not Recovered/Not Resolved]
  - Poor quality device used [Unknown]
  - Feeling abnormal [Not Recovered/Not Resolved]
  - Incorrect dose administered by product [Unknown]
  - Dysphonia [Not Recovered/Not Resolved]
  - Circumstance or information capable of leading to medication error [Unknown]
  - Product quality issue [Unknown]
  - Product quality issue [Unknown]

NARRATIVE: CASE EVENT DATE: 20190108
